FAERS Safety Report 5411142-6 (Version None)
Quarter: 2007Q3

REPORT INFORMATION
  Report Type: 
  Country: None (occurrence: None)
  Receive Date: 20070808
  Receipt Date: 20070723
  Transmission Date: 20080115
  Serious: Yes (Life-Threatening, Hospitalization)
  Sender: FDA-Public Use
  Company Number: 112373ISR

PATIENT
  Age: 66 Year
  Sex: Male

DRUGS (1)
  1. DICLOFENAC [Suspect]
     Indication: BACK PAIN

REACTIONS (15)
  - ANOREXIA [None]
  - AXILLARY PAIN [None]
  - BACTERAEMIA [None]
  - ECTHYMA [None]
  - ESCHAR [None]
  - GANGRENE [None]
  - LETHARGY [None]
  - NEUTROPENIA [None]
  - NO THERAPEUTIC RESPONSE [None]
  - OEDEMA [None]
  - PSEUDOMONAS INFECTION [None]
  - SCAR [None]
  - SKIN NECROSIS [None]
  - SUPRAPUBIC PAIN [None]
  - WHITE BLOOD CELL COUNT DECREASED [None]
